FAERS Safety Report 6094030-4 (Version None)
Quarter: 2009Q1

REPORT INFORMATION
  Report Type: 
  Country: None (occurrence: None)
  Receive Date: 20090226
  Receipt Date: 20090216
  Transmission Date: 20090719
  Serious: Yes (Hospitalization)
  Sender: FDA-Public Use
  Company Number: JP-JNJFOC-20081005650

PATIENT
  Sex: Male

DRUGS (14)
  1. DOXORUBICIN HCL [Suspect]
     Route: 042
  2. DOXORUBICIN HCL [Suspect]
     Route: 042
  3. DOXORUBICIN HCL [Suspect]
     Route: 042
  4. DOXORUBICIN HCL [Suspect]
     Route: 042
  5. DOXORUBICIN HCL [Suspect]
     Route: 042
  6. DOXORUBICIN HCL [Suspect]
     Route: 042
  7. DOXORUBICIN HCL [Suspect]
     Indication: CASTLEMAN'S DISEASE
     Route: 042
  8. LAMIVUDINE ABACAVIR SULFATE [Concomitant]
     Route: 048
  9. VALGANCICLOVIR HCL [Concomitant]
     Route: 048
  10. VALGANCICLOVIR HCL [Concomitant]
     Indication: CASTLEMAN'S DISEASE
     Route: 048
  11. RITUXIMAB [Concomitant]
     Indication: CASTLEMAN'S DISEASE
     Route: 041
  12. FILGRASTIM [Concomitant]
     Indication: NEUTROPENIA
     Route: 058
  13. PENTAMIDINE ISETHIONATE [Concomitant]
     Route: 055
  14. ATAZANAVIR SULFATE [Concomitant]
     Route: 048

REACTIONS (4)
  - CASTLEMAN'S DISEASE [None]
  - CHOLELITHIASIS [None]
  - KAPOSI'S SARCOMA [None]
  - OFF LABEL USE [None]
